FAERS Safety Report 12641880 (Version 4)
Quarter: 2020Q4

REPORT INFORMATION
  Report Type: Report from Study
  Country: CA (occurrence: CA)
  Receive Date: 20160810
  Receipt Date: 20201222
  Transmission Date: 20210113
  Serious: Yes (Death, Other)
  Sender: FDA-Public Use
  Company Number: CA-JNJFOC-20160805586

PATIENT
  Age: 31 Year
  Sex: Female
  Weight: 89.81 kg

DRUGS (1)
  1. REMICADE [Suspect]
     Active Substance: INFLIXIMAB
     Indication: CROHN^S DISEASE
     Route: 042
     Dates: start: 20150929

REACTIONS (4)
  - Death [Fatal]
  - Stomatitis [Unknown]
  - Pneumonia [Unknown]
  - Ear infection [Unknown]

NARRATIVE: CASE EVENT DATE: 20170221
